FAERS Safety Report 20716791 (Version 1)
Quarter: 2022Q2

REPORT INFORMATION
  Report Type: Spontaneous
  Country: US (occurrence: US)
  Receive Date: 20220416
  Receipt Date: 20220416
  Transmission Date: 20220721
  Serious: Yes (Death, Hospitalization, Other)
  Sender: FDA-Public Use
  Company Number: US-BRISTOL-MYERS SQUIBB COMPANY-2022-016738

PATIENT
  Sex: Female

DRUGS (2)
  1. ELIQUIS [Suspect]
     Active Substance: APIXABAN
     Indication: Cardiac failure congestive
     Dosage: DOSE : 2.5 MG;     FREQ : TWICE DAILY
  2. ELIQUIS [Suspect]
     Active Substance: APIXABAN
     Dosage: DOSE : 2.5MG;     FREQ : DAILY

REACTIONS (7)
  - Off label use [Unknown]
  - Hepatic cirrhosis [Unknown]
  - Lower limb fracture [Unknown]
  - Atrial fibrillation [Unknown]
  - Localised infection [Unknown]
  - Skin discolouration [Unknown]
  - Death [Fatal]
